FAERS Safety Report 7152751-6 (Version None)
Quarter: 2010Q4

REPORT INFORMATION
  Report Type: 
  Country: None (occurrence: None)
  Receive Date: 20101123
  Receipt Date: 20101109
  Transmission Date: 20110411
  Serious: Yes (Hospitalization)
  Sender: FDA-Public Use
  Company Number: 2010003602

PATIENT
  Age: 55 Year
  Sex: Male

DRUGS (8)
  1. ERLOTINIB/PLACEBO (ERLOTINIB) (TABLET) (ERLOTINIB) [Suspect]
     Indication: NON-SMALL CELL LUNG CANCER STAGE IIIB
     Dosage: ORAL
     Route: 048
     Dates: start: 20100715
  2. GEMCITABINE [Suspect]
     Indication: NON-SMALL CELL LUNG CANCER STAGE IIIB
     Dosage: (1.7 GM), INTRAVENOUS
     Route: 042
     Dates: start: 20100617
  3. CARBOPLATIN [Suspect]
     Indication: NON-SMALL CELL LUNG CANCER STAGE IIIB
     Dosage: (420 MG), INTRAVENOUS
     Route: 042
     Dates: start: 20100617
  4. MULTIVITAMIN [Concomitant]
  5. METOCLOPRAMIDE [Concomitant]
  6. FERROUS SULFATE TAB [Concomitant]
  7. PIZOTIFEN (PIZOTIFEN) [Concomitant]
  8. HYDROCORTONE [Concomitant]

REACTIONS (1)
  - ANAEMIA [None]
